FAERS Safety Report 21759790 (Version 1)
Quarter: 2022Q4

REPORT INFORMATION
  Report Type: Report from Study
  Country: US (occurrence: US)
  Receive Date: 20221221
  Receipt Date: 20221221
  Transmission Date: 20230113
  Serious: Yes (Hospitalization)
  Sender: FDA-Public Use
  Company Number: US-ABBVIE-4244543

PATIENT
  Sex: Male

DRUGS (2)
  1. VENCLEXTA [Suspect]
     Active Substance: VENETOCLAX
     Indication: Chronic lymphocytic leukaemia
     Route: 048
     Dates: start: 20220319, end: 202212
  2. CALQUENCE [Concomitant]
     Active Substance: ACALABRUTINIB
     Indication: Chronic lymphocytic leukaemia
     Dates: start: 20221122

REACTIONS (1)
  - Hospitalisation [Unknown]
